FAERS Safety Report 4332965-0 (Version None)
Quarter: 2004Q2

REPORT INFORMATION
  Report Type: 
  Country: None (occurrence: None)
  Receive Date: 20040405
  Receipt Date: 20040405
  Transmission Date: 20050107
  Serious: Yes (Other)
  Sender: FDA-Public Use
  Company Number: None

PATIENT
  Age: 54 Year
  Sex: Female

DRUGS (6)
  1. ARIPIPRAZOLE 5 MG BRISTOL MEYERS [Suspect]
     Indication: ANXIETY
     Dosage: 5 MG X 1 DAILY ORAL IN AM
     Route: 048
     Dates: start: 20040326, end: 20040424
  2. ARIPIPRAZOLE 5 MG BRISTOL MEYERS [Suspect]
     Indication: OBSESSIVE-COMPULSIVE DISORDER
     Dosage: 5 MG X 1 DAILY ORAL IN AM
     Route: 048
     Dates: start: 20040326, end: 20040424
  3. ARIPIPRAZOLE 5 MG BRISTOL MEYERS [Suspect]
     Indication: POST-TRAUMATIC STRESS DISORDER
     Dosage: 5 MG X 1 DAILY ORAL IN AM
     Route: 048
     Dates: start: 20040326, end: 20040424
  4. XANAX [Concomitant]
  5. PRINIVIL [Concomitant]
  6. HYDROCHLOROTHIAZIDE [Concomitant]

REACTIONS (10)
  - AGITATION [None]
  - ANXIETY [None]
  - DIFFICULTY IN WALKING [None]
  - FEELING ABNORMAL [None]
  - FLAT AFFECT [None]
  - HALLUCINATION [None]
  - INSOMNIA [None]
  - NERVOUS SYSTEM DISORDER [None]
  - TREMOR [None]
  - WEIGHT DECREASED [None]
